FAERS Safety Report 15738665 (Version 1)
Quarter: 2018Q4

REPORT INFORMATION
  Report Type: Spontaneous
  Country: US (occurrence: US)
  Receive Date: 20181204
  Receipt Date: 20181204
  Transmission Date: 20190205
  Serious: Yes (Hospitalization)
  Sender: FDA-Public Use
  Company Number: None

PATIENT
  Age: 74 Year

DRUGS (1)
  1. DAPTOMYCIN 500 FRESENIUS KABI USA [Suspect]
     Active Substance: DAPTOMYCIN
     Indication: DEVICE RELATED INFECTION
     Route: 042
     Dates: start: 20181024, end: 20181113

REACTIONS (2)
  - Blood creatine phosphokinase increased [None]
  - Blood creatinine increased [None]

NARRATIVE: CASE EVENT DATE: 20181113
